FAERS Safety Report 15309215 (Version 4)
Quarter: 2023Q4

REPORT INFORMATION
  Report Type: Report from Study
  Country: US (occurrence: None)
  Receive Date: 20180823
  Receipt Date: 20231012
  Transmission Date: 20240109
  Serious: Yes (Hospitalization)
  Sender: FDA-Public Use
  Company Number: US-ROCHE-2171118

PATIENT
  Age: 61 Year
  Sex: Male

DRUGS (2)
  1. COBIMETINIB [Suspect]
     Active Substance: COBIMETINIB
     Indication: Metastatic malignant melanoma
     Dosage: DATE OF MOST RECENT DOSE: 05/AUG/2018
     Route: 048
     Dates: start: 20180423
  2. VEMURAFENIB [Suspect]
     Active Substance: VEMURAFENIB
     Indication: Metastatic malignant melanoma
     Dosage: DATE OF MOST RECENT DOSE: 05/AUG/2018
     Route: 048
     Dates: start: 20180423

REACTIONS (2)
  - Colonic abscess [Recovered/Resolved]
  - Nephrolithiasis [Recovered/Resolved]

NARRATIVE: CASE EVENT DATE: 20180814
